FAERS Safety Report 4827849-5 (Version None)
Quarter: 2005Q4

REPORT INFORMATION
  Report Type: 
  Country: None (occurrence: None)
  Receive Date: 20051114
  Receipt Date: 20051114
  Transmission Date: 20060501
  Serious: Yes (Other)
  Sender: FDA-Public Use
  Company Number: None

PATIENT
  Age: 24 Year
  Sex: Female
  Weight: 37.6486 kg

DRUGS (1)
  1. ORTHO EVRA [Suspect]
     Indication: CONTRACEPTION
     Dosage: 1 PATCH    WEEK
     Dates: start: 20050804, end: 20051020

REACTIONS (3)
  - FALL [None]
  - FATIGUE [None]
  - SHOCK HYPOGLYCAEMIC [None]
